FAERS Safety Report 17386923 (Version 2)
Quarter: 2020Q1

REPORT INFORMATION
  Report Type: Spontaneous
  Country: BE (occurrence: BE)
  Receive Date: 20200206
  Receipt Date: 20200303
  Transmission Date: 20200409
  Serious: Yes (Hospitalization, Disabling, Other)
  Sender: FDA-Public Use
  Company Number: BE-MYLANLABS-2019M1045978

PATIENT
  Age: 68 Year
  Sex: Male

DRUGS (4)
  1. PEMETREXED. [Suspect]
     Active Substance: PEMETREXED
     Indication: CHEMOTHERAPY
  2. PEMETREXED. [Suspect]
     Active Substance: PEMETREXED
     Indication: METASTASES TO LIVER
  3. VALACICLOVIR [Suspect]
     Active Substance: VALACYCLOVIR HYDROCHLORIDE
     Indication: VARICELLA ZOSTER VIRUS INFECTION
     Dosage: 10 MG/KG, TID
  4. PEMETREXED. [Suspect]
     Active Substance: PEMETREXED
     Indication: LUNG ADENOCARCINOMA STAGE IV
     Dosage: UNK
     Route: 065

REACTIONS (20)
  - Hypoacusis [Unknown]
  - Blister [Unknown]
  - Tinnitus [Not Recovered/Not Resolved]
  - Superinfection bacterial [Unknown]
  - Staphylococcal infection [Unknown]
  - Facial paralysis [Unknown]
  - Drug ineffective [Unknown]
  - Vertigo [Unknown]
  - Headache [Unknown]
  - Varicella zoster virus infection [Unknown]
  - Erythema [Unknown]
  - Skin ulcer [Unknown]
  - Deafness unilateral [Not Recovered/Not Resolved]
  - Herpes zoster oticus [Recovering/Resolving]
  - Pneumonia [Unknown]
  - Pain [Unknown]
  - Immunodeficiency [Unknown]
  - Gait disturbance [Unknown]
  - Varicella zoster pneumonia [Unknown]
  - Lymphadenopathy [Unknown]

NARRATIVE: CASE EVENT DATE: 201401
